FAERS Safety Report 5367401-9 (Version None)
Quarter: 2007Q2

REPORT INFORMATION
  Report Type: 
  Country: None (occurrence: None)
  Receive Date: 20070622
  Receipt Date: 20060919
  Transmission Date: 20071010
  Serious: No
  Sender: FDA-Public Use
  Company Number: US-ASTRAZENECA-2006UW18233

PATIENT
  Age: 6 Year
  Sex: Female
  Weight: 23.6 kg

DRUGS (4)
  1. PULMICORT [Suspect]
     Indication: ASTHMA
     Route: 055
     Dates: start: 20060729
  2. ZYRTEC [Concomitant]
  3. NASONEX [Concomitant]
  4. ALBUTEROL [Concomitant]

REACTIONS (2)
  - COUGH [None]
  - RHINORRHOEA [None]
